FAERS Safety Report 11705949 (Version 4)
Quarter: 2020Q3

REPORT INFORMATION
  Report Type: Report from Study
  Country: DE (occurrence: DE)
  Receive Date: 20151106
  Receipt Date: 20160111
  Transmission Date: 20201105
  Serious: Yes (Death, Hospitalization)
  Sender: FDA-Public Use
  Company Number: DE-JNJFOC-20150919224

PATIENT
  Age: 33 Year
  Sex: Female
  Weight: 70 kg

DRUGS (26)
  1. MARCUMAR [Concomitant]
     Active Substance: PHENPROCOUMON
     Route: 048
     Dates: start: 20150817, end: 20150821
  2. MCP [Concomitant]
     Active Substance: METOCLOPRAMIDE HYDROCHLORIDE
     Route: 048
     Dates: start: 20150817, end: 20150911
  3. TRAMAL [Concomitant]
     Active Substance: TRAMADOL
     Route: 048
     Dates: start: 20150817, end: 20150821
  4. TORASEMID [Concomitant]
     Active Substance: TORSEMIDE
     Indication: HYPERTENSION
     Route: 048
     Dates: start: 20150224
  5. BISOPROLOL [Concomitant]
     Active Substance: BISOPROLOL
     Indication: HYPERTENSION
     Route: 048
     Dates: start: 201101
  6. MARCUMAR [Concomitant]
     Active Substance: PHENPROCOUMON
     Route: 048
     Dates: start: 20130409
  7. METRONIDAZOLE. [Concomitant]
     Active Substance: METRONIDAZOLE
     Route: 065
     Dates: start: 20150902, end: 201509
  8. LERCANIDIPIN [Concomitant]
     Active Substance: LERCANIDIPINE
     Route: 048
     Dates: start: 20150417, end: 20150911
  9. NEXIUM [Concomitant]
     Active Substance: ESOMEPRAZOLE MAGNESIUM
     Indication: PROPHYLAXIS
     Route: 048
     Dates: start: 20140523
  10. ROCEFIN [Concomitant]
     Active Substance: CEFTRIAXONE SODIUM
     Route: 065
     Dates: start: 20150902
  11. ROCEPHIN [Concomitant]
     Active Substance: CEFTRIAXONE SODIUM
     Route: 065
     Dates: start: 20150902, end: 201509
  12. USTEKINUMAB [Suspect]
     Active Substance: USTEKINUMAB
     Indication: CROHN^S DISEASE
     Dosage: AT 16:05
     Route: 065
     Dates: start: 20121015
  13. PREDNISOLON [Concomitant]
     Active Substance: PREDNISOLONE
     Indication: CROHN^S DISEASE
     Route: 048
     Dates: start: 20141006
  14. PREDNISOLON [Concomitant]
     Active Substance: PREDNISOLONE
     Indication: CROHN^S DISEASE
     Route: 048
     Dates: start: 20150817, end: 20150911
  15. IMODIUM [Concomitant]
     Active Substance: LOPERAMIDE HYDROCHLORIDE
     Route: 048
     Dates: start: 20131224
  16. METOCLOPRAMID [Concomitant]
     Active Substance: METOCLOPRAMIDE
     Indication: NAUSEA
     Route: 048
     Dates: start: 20130714
  17. HEPARIN [Concomitant]
     Active Substance: HEPARIN SODIUM
     Indication: THROMBOSIS
     Route: 058
     Dates: start: 20150902, end: 20150911
  18. DECORTIN [Concomitant]
     Active Substance: PREDNISONE
     Route: 048
     Dates: start: 20150307
  19. TRAMADOL. [Concomitant]
     Active Substance: TRAMADOL
     Route: 048
     Dates: start: 20130623
  20. LEONA [Concomitant]
     Indication: CONTRACEPTION
     Route: 048
     Dates: start: 1994
  21. NEXIUM [Concomitant]
     Active Substance: ESOMEPRAZOLE MAGNESIUM
     Indication: PROPHYLAXIS
     Route: 048
     Dates: start: 20150817, end: 20150821
  22. PARACETAMOL [Concomitant]
     Active Substance: ACETAMINOPHEN
     Route: 054
     Dates: start: 20130513
  23. TAVANIC [Concomitant]
     Active Substance: LEVOFLOXACIN
     Route: 065
     Dates: start: 201509, end: 201509
  24. USTEKINUMAB [Suspect]
     Active Substance: USTEKINUMAB
     Route: 065
  25. LERCANIDIPIN [Concomitant]
     Active Substance: LERCANIDIPINE
     Route: 048
     Dates: start: 20140706
  26. DEKRISTOL [Concomitant]
     Active Substance: CHOLECALCIFEROL
     Indication: PROPHYLAXIS
     Route: 048
     Dates: start: 20140603

REACTIONS (2)
  - Septic shock [Fatal]
  - Abdominal pain [Not Recovered/Not Resolved]

NARRATIVE: CASE EVENT DATE: 20150914
